FAERS Safety Report 12728487 (Version 1)
Quarter: 2016Q3

REPORT INFORMATION
  Report Type: Spontaneous
  Country: IT (occurrence: IT)
  Receive Date: 20160909
  Receipt Date: 20160909
  Transmission Date: 20161109
  Serious: Yes (Hospitalization)
  Sender: FDA-Public Use
  Company Number: IT-PFIZER INC-2016419886

PATIENT
  Age: 64 Year
  Sex: Male

DRUGS (3)
  1. PREGABALIN. [Suspect]
     Active Substance: PREGABALIN
     Dosage: 75 MG, DAILY
     Route: 048
     Dates: start: 20160219
  2. ENOXAPARIN [Suspect]
     Active Substance: ENOXAPARIN
     Indication: VENA CAVA THROMBOSIS
     Dosage: 8 IU, DAILY
     Route: 058
     Dates: start: 20160219
  3. SORAFENIB [Suspect]
     Active Substance: SORAFENIB
     Indication: HEPATOCELLULAR CARCINOMA
     Dosage: 800 MG, DAILY
     Route: 048
     Dates: start: 20160306, end: 20160318

REACTIONS (2)
  - Hepatic encephalopathy [Recovered/Resolved with Sequelae]
  - Melaena [Recovered/Resolved with Sequelae]

NARRATIVE: CASE EVENT DATE: 20160318
